FAERS Safety Report 6750992-0 (Version None)
Quarter: 2010Q2

REPORT INFORMATION
  Report Type: 
  Country: None (occurrence: None)
  Receive Date: 20100526
  Receipt Date: 20100512
  Transmission Date: 20101027
  Serious: Yes (Other)
  Sender: FDA-Public Use
  Company Number: AUR-APL-2010-01305

PATIENT
  Age: 78 Year
  Sex: Male

DRUGS (6)
  1. SIMVASTATIN [Suspect]
     Dosage: 20MG - DAILY - ORAL
     Route: 048
     Dates: end: 20091001
  2. ANTABUSE [Suspect]
     Indication: ALCOHOL ABUSE
     Dosage: 200MG - DAILY - ORAL, SPRING 2008
     Route: 048
     Dates: start: 20080101, end: 20091007
  3. PROSCAR [Concomitant]
  4. ZESTRIL [Concomitant]
  5. ALBYL-E 75MG [Concomitant]
  6. LEVOTHYROXINE SODIUM [Concomitant]

REACTIONS (4)
  - COGNITIVE DISORDER [None]
  - DEREALISATION [None]
  - MEMORY IMPAIRMENT [None]
  - THINKING ABNORMAL [None]
